FAERS Safety Report 9759260 (Version 1)
Quarter: 2013Q4

REPORT INFORMATION
  Report Type: Spontaneous
  Country: US (occurrence: None)
  Receive Date: 20131216
  Receipt Date: 20131216
  Transmission Date: 20140711
  Serious: Yes (Other)
  Sender: FDA-Public Use
  Company Number: 163-21880-12111472(0)

PATIENT
  Age: 79 Year
  Sex: Male

DRUGS (1)
  1. REVLIMID [Suspect]
     Indication: MYELODYSPLASTIC SYNDROME
     Dosage: 10 MG, 1IN 1 D, PO?5MG-10MG, 1 IN 1 D, PO ?5 MG, MON, WED, AND FRI FOR 28 DAYS, PO

REACTIONS (2)
  - Fatigue [None]
  - Pruritus [None]
